FAERS Safety Report 9106425 (Version 1)
Quarter: 2013Q1

REPORT INFORMATION
  Report Type: Spontaneous
  Country: BE (occurrence: BE)
  Receive Date: 20130221
  Receipt Date: 20130221
  Transmission Date: 20140127
  Serious: Yes (Other)
  Sender: FDA-Public Use
  Company Number: BE-PFIZER INC-2013061060

PATIENT
  Age: 23 Year
  Sex: Female

DRUGS (1)
  1. SALAZOPYRINE [Suspect]
     Indication: PALINDROMIC RHEUMATISM
     Dosage: 500 MG, 4X/DAY
     Route: 048
     Dates: start: 20090416, end: 20121115

REACTIONS (1)
  - Lupus-like syndrome [Recovering/Resolving]
